FAERS Safety Report 11228601 (Version 2)
Quarter: 2015Q3

REPORT INFORMATION
  Report Type: Spontaneous
  Country: AU (occurrence: AU)
  Receive Date: 20150630
  Receipt Date: 20150715
  Transmission Date: 20151125
  Serious: Yes (Disabling, Other)
  Sender: FDA-Public Use
  Company Number: AU-ABBVIE-15P-008-1415457-00

PATIENT
  Age: 48 Year
  Sex: Male

DRUGS (3)
  1. SAQUINAVIR MESYLATE [Suspect]
     Active Substance: SAQUINAVIR MESYLATE
     Indication: ANTIRETROVIRAL THERAPY
     Route: 065
  2. RITONAVIR. [Suspect]
     Active Substance: RITONAVIR
     Indication: ANTIRETROVIRAL THERAPY
     Route: 048
  3. TENOFOVIR DISOPROXIL FUMARATE. [Suspect]
     Active Substance: TENOFOVIR DISOPROXIL FUMARATE
     Indication: ANTIRETROVIRAL THERAPY
     Route: 065

REACTIONS (4)
  - Myelitis transverse [Unknown]
  - CSF lymphocyte count abnormal [Unknown]
  - Immune reconstitution inflammatory syndrome [Unknown]
  - Nervous system disorder [Recovered/Resolved with Sequelae]
